FAERS Safety Report 6108823-8 (Version None)
Quarter: 2009Q1

REPORT INFORMATION
  Report Type: 
  Country: None (occurrence: None)
  Receive Date: 20090310
  Receipt Date: 20090304
  Transmission Date: 20090719
  Serious: Yes (Hospitalization, Disabling)
  Sender: FDA-Public Use
  Company Number: FR-BRISTOL-MYERS SQUIBB COMPANY-14532980

PATIENT
  Age: 29 Year
  Sex: Female
  Weight: 51 kg

DRUGS (6)
  1. AMIKLIN INJ [Suspect]
     Indication: TUBERCULOSIS
     Dosage: DOSE DECREASED TO 3/WEEK ON 16MAY08
     Route: 030
     Dates: start: 20080209, end: 20080606
  2. CYCLOSERINE [Suspect]
     Indication: TUBERCULOSIS
     Dates: start: 20080303, end: 20080403
  3. ETHIONAMIDE [Suspect]
     Dates: start: 20080222
  4. IZILOX [Suspect]
     Dates: start: 20080201
  5. PIRILENE [Suspect]
     Dates: start: 20080222
  6. PARA AMINOSALICYLIC ACID [Suspect]
     Dates: start: 20080222

REACTIONS (4)
  - AUDIOGRAM ABNORMAL [None]
  - BREAST CYST [None]
  - CONVULSION [None]
  - DEPRESSION [None]
